FAERS Safety Report 9421832 (Version 1)
Quarter: 2013Q3

REPORT INFORMATION
  Report Type: Spontaneous
  Country: FR (occurrence: FR)
  Receive Date: 20130726
  Receipt Date: 20130726
  Transmission Date: 20140515
  Serious: Yes (Other)
  Sender: FDA-Public Use
  Company Number: PHHY2013FR079529

PATIENT
  Age: 7 Year
  Sex: Female
  Weight: 21 kg

DRUGS (4)
  1. TEGRETOL [Suspect]
     Indication: EPILEPSY
     Dosage: 50 MG, BID
     Route: 048
     Dates: start: 20130717, end: 20130723
  2. INOVELON [Concomitant]
     Dosage: UNK UKN, UNK
     Dates: start: 2012
  3. MICROPAKINE [Concomitant]
     Dosage: UNK UKN, UNK
     Dates: start: 2012
  4. INEXIUM//ESOMEPRAZOLE MAGNESIUM [Concomitant]
     Dosage: UNK UKN, UNK
     Dates: start: 2012

REACTIONS (5)
  - Ecchymosis [Unknown]
  - Myoclonus [Unknown]
  - Drug withdrawal syndrome [Unknown]
  - Hyperhidrosis [Unknown]
  - Skin plaque [Unknown]
